FAERS Safety Report 11200658 (Version 3)
Quarter: 2015Q3

REPORT INFORMATION
  Report Type: Report from Study
  Country: DE (occurrence: DE)
  Receive Date: 20150618
  Receipt Date: 20150731
  Transmission Date: 20151125
  Serious: Yes (Death, Hospitalization)
  Sender: FDA-Public Use
  Company Number: DE-ABBVIE-15P-062-1411776-00

PATIENT
  Age: 75 Year
  Sex: Female

DRUGS (2)
  1. DUODOPA [Suspect]
     Active Substance: CARBIDOPA\LEVODOPA
     Indication: PARKINSON^S DISEASE
     Dosage: MD 3.0ML, CRD 2.6ML/H, CRN 1.1ML/H, ED 0.5ML
     Route: 050
     Dates: start: 20101022
  2. CLOZAPIN [Concomitant]
     Active Substance: CLOZAPINE
     Indication: PRODUCT USED FOR UNKNOWN INDICATION

REACTIONS (7)
  - Agitation [Fatal]
  - Fear [Fatal]
  - Pneumonia aspiration [Fatal]
  - Dysphagia [Fatal]
  - Anxiety [Fatal]
  - Aggression [Fatal]
  - Abnormal behaviour [Fatal]

NARRATIVE: CASE EVENT DATE: 20150608
